FAERS Safety Report 8816793 (Version 1)
Quarter: 2012Q4

REPORT INFORMATION
  Report Type: Spontaneous
  Country: US (occurrence: None)
  Receive Date: 20121001
  Receipt Date: 20121001
  Transmission Date: 20130627
  Serious: Yes (Disabling, Other)
  Sender: FDA-Public Use
  Company Number: 2012MA011760

PATIENT
  Age: 69 Year
  Sex: Female

DRUGS (9)
  1. ROPINIROLE [Suspect]
     Indication: RESTLESS LEGS
     Route: 048
     Dates: start: 20120823, end: 20120907
  2. SIMVASTATIN [Concomitant]
  3. RAMIPRIL [Concomitant]
  4. ETORICOXIB [Concomitant]
  5. PARACETAMOL [Concomitant]
  6. FUROSEMIDE [Concomitant]
  7. SALBUTAMOL [Concomitant]
  8. AZATHIOPRINE [Concomitant]
  9. ACETYLCYSTEINE [Concomitant]

REACTIONS (1)
  - Insomnia [None]
